FAERS Safety Report 9964006 (Version 5)
Quarter: 2014Q3

REPORT INFORMATION
  Report Type: Spontaneous
  Country: US (occurrence: US)
  Receive Date: 20140305
  Receipt Date: 20140904
  Transmission Date: 20150326
  Serious: Yes (Hospitalization)
  Sender: FDA-Public Use
  Company Number: US-GLAXOSMITHKLINE-A1062354A

PATIENT
  Age: 58 Year
  Sex: Female

DRUGS (8)
  1. CIPRO [Suspect]
     Active Substance: CIPROFLOXACIN HYDROCHLORIDE
     Indication: PRODUCT USED FOR UNKNOWN INDICATION
     Route: 065
  2. VENTOLIN [Suspect]
     Active Substance: ALBUTEROL SULFATE
     Indication: ASTHMA
     Route: 055
     Dates: start: 20140110
  3. FLOVENT [Suspect]
     Active Substance: FLUTICASONE PROPIONATE
     Indication: ASTHMA
     Dosage: 2PUFF TWICE PER DAY
     Route: 055
     Dates: start: 20140305
  4. ASPIRIN. [Concomitant]
     Active Substance: ASPIRIN
  5. ALBUTEROL/IPRATROPIUM [Concomitant]
     Active Substance: ALBUTEROL\IPRATROPIUM
  6. ROBITUSSIN DM [Concomitant]
     Active Substance: DEXTROMETHORPHAN HYDROBROMIDE\GUAIFENESIN
  7. ADVAIR HFA [Suspect]
     Active Substance: FLUTICASONE PROPIONATE\SALMETEROL XINAFOATE
     Indication: CHRONIC OBSTRUCTIVE PULMONARY DISEASE
     Dosage: 1PUFF UNKNOWN
     Route: 055
     Dates: start: 20121212, end: 20140110
  8. OXYGEN. [Concomitant]
     Active Substance: OXYGEN

REACTIONS (20)
  - Chronic obstructive pulmonary disease [Unknown]
  - Investigation [Unknown]
  - Condition aggravated [Recovering/Resolving]
  - Off label use [Unknown]
  - Drug ineffective [Unknown]
  - Visual acuity reduced [Not Recovered/Not Resolved]
  - Chest pain [Recovering/Resolving]
  - Pneumonia [Recovering/Resolving]
  - Anxiety [Recovering/Resolving]
  - Malaise [Unknown]
  - Ill-defined disorder [Unknown]
  - Cough [Recovering/Resolving]
  - Oxygen saturation decreased [Recovered/Resolved]
  - Ill-defined disorder [Recovering/Resolving]
  - Haemoptysis [Recovering/Resolving]
  - Fatigue [Not Recovered/Not Resolved]
  - Blood urine present [Not Recovered/Not Resolved]
  - Eye operation [Unknown]
  - Sepsis [Recovering/Resolving]
  - Dyspnoea [Recovering/Resolving]

NARRATIVE: CASE EVENT DATE: 201302
